FAERS Safety Report 20455085 (Version 1)
Quarter: 2022Q1

REPORT INFORMATION
  Report Type: Report from Study
  Country: SA (occurrence: SA)
  Receive Date: 20220210
  Receipt Date: 20220210
  Transmission Date: 20220423
  Serious: Yes (Death, Hospitalization)
  Sender: FDA-Public Use
  Company Number: SA-BoehringerIngelheim-2022-BI-152375

PATIENT

DRUGS (1)
  1. DABIGATRAN [Suspect]
     Active Substance: DABIGATRAN
     Indication: Product used for unknown indication
     Route: 048

REACTIONS (2)
  - Renal failure [Fatal]
  - Gastrointestinal haemorrhage [Not Recovered/Not Resolved]
